FAERS Safety Report 23504635 (Version 2)
Quarter: 2025Q1

REPORT INFORMATION
  Report Type: Spontaneous
  Country: US (occurrence: US)
  Receive Date: 20240209
  Receipt Date: 20250319
  Transmission Date: 20250408
  Serious: No
  Sender: BIOGEN
  Company Number: US-BIOGEN-2024BI01248968

PATIENT
  Age: 66 Year
  Sex: Female

DRUGS (1)
  1. VUMERITY [Suspect]
     Active Substance: DIROXIMEL FUMARATE
     Indication: Multiple sclerosis
     Route: 050
     Dates: start: 20210408

REACTIONS (7)
  - Sciatica [Unknown]
  - Urinary tract infection [Unknown]
  - Sinusitis [Unknown]
  - Protein total increased [Unknown]
  - Insomnia [Unknown]
  - Lymphocyte count decreased [Unknown]
  - Candida infection [Unknown]

NARRATIVE: CASE EVENT DATE: 20231201
